FAERS Safety Report 6705817-6 (Version None)
Quarter: 2010Q2

REPORT INFORMATION
  Report Type: 
  Country: None (occurrence: None)
  Receive Date: 20100503
  Receipt Date: 20081110
  Transmission Date: 20101027
  Serious: Yes (Other)
  Sender: FDA-Public Use
  Company Number: US-BAYER-200835006NA

PATIENT
  Sex: Female

DRUGS (1)
  1. MIRENA [Suspect]
     Indication: CONTRACEPTION
     Dosage: CONTINUOUS RELEASE
     Route: 015
     Dates: start: 20041201, end: 20080101

REACTIONS (9)
  - ABDOMINAL DISTENSION [None]
  - BLOOD GLUCOSE ABNORMAL [None]
  - HEADACHE [None]
  - INNER EAR DISORDER [None]
  - LIBIDO DECREASED [None]
  - MIGRAINE [None]
  - THYROID FUNCTION TEST ABNORMAL [None]
  - VERTIGO [None]
  - VISION BLURRED [None]
